FAERS Safety Report 8943580 (Version 1)
Quarter: 2012Q4

REPORT INFORMATION
  Report Type: 
  Country: US (occurrence: US)
  Receive Date: 20121204
  Receipt Date: 20121204
  Transmission Date: 20130627
  Serious: Yes (Death, Life-Threatening, Hospitalization)
  Sender: FDA-Public Use
  Company Number: US-ROXANE LABORATORIES, INC.-2012-RO-02478RO

PATIENT
  Age: 73 Year
  Sex: Male

DRUGS (2)
  1. PREDNISONE [Suspect]
     Indication: MULTIPLE MYELOMA
     Dosage: 120 mg
     Route: 048
     Dates: start: 20120724, end: 20120727
  2. MELPHALAN [Suspect]
     Indication: MULTIPLE MYELOMA
     Dosage: 15 mg
     Route: 048
     Dates: start: 20120724, end: 20120727

REACTIONS (3)
  - Respiratory failure [Fatal]
  - Cardiac arrest [Recovered/Resolved]
  - Pneumonia [Unknown]
